FAERS Safety Report 7308753-X (Version None)
Quarter: 2011Q1

REPORT INFORMATION
  Report Type: 
  Country: None (occurrence: None)
  Receive Date: 20110223
  Receipt Date: 20110211
  Transmission Date: 20110831
  Serious: Yes (Hospitalization)
  Sender: FDA-Public Use
  Company Number: PHHY2011US07569

PATIENT
  Sex: Female
  Weight: 89 kg

DRUGS (12)
  1. ANTIBIOTICS [Concomitant]
     Dosage: UNK
  2. EXJADE [Suspect]
     Indication: MYELODYSPLASTIC SYNDROME
     Dosage: 2500 MG, QD
     Route: 048
     Dates: start: 20090902
  3. CENTRUM SILVER [Concomitant]
  4. AMBIEN [Concomitant]
  5. VICOPROFEN [Concomitant]
  6. NEXIUM [Concomitant]
  7. COREG [Concomitant]
  8. POTASSIUM [Concomitant]
  9. QUINAPRIL [Concomitant]
  10. GABAPENTIN [Concomitant]
  11. LEVATOL [Concomitant]
  12. NITROGLYCERIN [Concomitant]

REACTIONS (4)
  - KIDNEY INFECTION [None]
  - PELVIC FRACTURE [None]
  - ABDOMINAL DISCOMFORT [None]
  - FALL [None]
